FAERS Safety Report 15268255 (Version 1)
Quarter: 2018Q3

REPORT INFORMATION
  Report Type: Spontaneous
  Country: US (occurrence: US)
  Receive Date: 20180725
  Receipt Date: 20180725
  Transmission Date: 20181010
  Serious: Yes (Disabling)
  Sender: FDA-Public Use
  Company Number: None

PATIENT
  Age: 41 Year
  Sex: Female
  Weight: 80.74 kg

DRUGS (4)
  1. VALSARTAN /HYDROCHLOROTHIAZIDE, 25 MG 25 MG [Suspect]
     Active Substance: HYDROCHLOROTHIAZIDE\VALSARTAN
     Indication: HYPERTENSION
     Dosage: ?          QUANTITY:1 TABLET(S);?
     Route: 048
     Dates: start: 20030501, end: 20180723
  2. VITAMIN C [Concomitant]
     Active Substance: ASCORBIC ACID
  3. MULTI [Concomitant]
  4. VITAMIN D [Concomitant]
     Active Substance: CHOLECALCIFEROL

REACTIONS (7)
  - Neoplasm malignant [None]
  - Mammogram abnormal [None]
  - Hypotension [None]
  - Smear cervix abnormal [None]
  - Pregnancy [None]
  - Maternal exposure during pregnancy [None]
  - Pre-eclampsia [None]

NARRATIVE: CASE EVENT DATE: 20180723
